FAERS Safety Report 9202050 (Version 2)
Quarter: 2013Q2

REPORT INFORMATION
  Report Type: Spontaneous
  Country: US (occurrence: None)
  Receive Date: 20130327
  Receipt Date: 20130411
  Transmission Date: 20140414
  Serious: Yes (Hospitalization)
  Sender: FDA-Public Use
  Company Number: FK201300913

PATIENT
  Age: 82 Year
  Sex: Female

DRUGS (1)
  1. PACLITAXEL [Suspect]
     Indication: BREAST CANCER
     Dosage: 30 MG, CYCLICAL, INTRAVENOUS (NOT OTHERWISE SPECIFIED)
     Dates: start: 20130130, end: 20130130

REACTIONS (1)
  - Respiratory failure [None]
